FAERS Safety Report 23852775 (Version 1)
Quarter: 2024Q2

REPORT INFORMATION
  Report Type: Spontaneous
  Country: US (occurrence: None)
  Receive Date: 20240514
  Receipt Date: 20240514
  Transmission Date: 20240716
  Serious: Yes (Other)
  Sender: FDA-Public Use
  Company Number: US-ROCHE-3558104

PATIENT
  Sex: Male

DRUGS (1)
  1. OCREVUS [Suspect]
     Active Substance: OCRELIZUMAB
     Indication: Multiple sclerosis
     Route: 065

REACTIONS (5)
  - Gastrointestinal inflammation [Unknown]
  - Haemorrhoids [Unknown]
  - Blindness unilateral [Unknown]
  - Multiple sclerosis relapse [Unknown]
  - Visual impairment [Unknown]
